FAERS Safety Report 10150502 (Version 1)
Quarter: 2014Q2

REPORT INFORMATION
  Report Type: Spontaneous
  Country: DE (occurrence: DE)
  Receive Date: 20140502
  Receipt Date: 20140502
  Transmission Date: 20141212
  Serious: Yes (Other)
  Sender: FDA-Public Use
  Company Number: DE-UCBSA-119845

PATIENT
  Age: 9 Month
  Sex: Male
  Weight: 7 kg

DRUGS (1)
  1. KEPPRA [Suspect]
     Dosage: 1 TABLET, 750MG STRENGTH
     Route: 048

REACTIONS (1)
  - Accidental exposure to product by child [Unknown]
